FAERS Safety Report 10953132 (Version 1)
Quarter: 2015Q1

REPORT INFORMATION
  Report Type: Spontaneous
  Country: JP (occurrence: JP)
  Receive Date: 20150325
  Receipt Date: 20150325
  Transmission Date: 20150721
  Serious: Yes (Death)
  Sender: FDA-Public Use
  Company Number: JP-009507513-1503JPN010533

PATIENT

DRUGS (5)
  1. VEGETAMIN A [Concomitant]
     Active Substance: CHLORPROMAZINE HYDROCHLORIDE\PHENOBARBITAL\PROMETHAZINE
     Dosage: FORMULATION: POR, DAILY DOSE UNKNOWN
     Route: 048
  2. REMERON [Suspect]
     Active Substance: MIRTAZAPINE
     Dosage: DAILY DOSE UNKNOWN
     Route: 048
  3. LEXAPRO [Concomitant]
     Active Substance: ESCITALOPRAM OXALATE
     Dosage: FORMULATION: POR, DAILY DOSE UNKNOWN
     Route: 048
  4. TRIAZOLAM. [Concomitant]
     Active Substance: TRIAZOLAM
     Dosage: FORMULATION: POR, DAILY DOSE UNKNOWN
     Route: 048
  5. NITRAZEPAM [Concomitant]
     Active Substance: NITRAZEPAM
     Dosage: FORMULATION: POR, DAILY DOSE UNKNOWN
     Route: 048

REACTIONS (1)
  - Death [Fatal]
